FAERS Safety Report 26009154 (Version 1)
Quarter: 2025Q4

REPORT INFORMATION
  Report Type: Spontaneous
  Country: US (occurrence: US)
  Receive Date: 20251107
  Receipt Date: 20251107
  Transmission Date: 20260118
  Serious: Yes (Other)
  Sender: AMGEN
  Company Number: US-AMGEN-USASP2025217376

PATIENT

DRUGS (1)
  1. PROCRIT [Suspect]
     Active Substance: ERYTHROPOIETIN
     Indication: Anaemia
     Dosage: 20000 UNIT
     Route: 065

REACTIONS (5)
  - Liver injury [Unknown]
  - Nephropathy [Unknown]
  - Spinal disorder [Unknown]
  - Ulcer haemorrhage [Unknown]
  - Product dose omission issue [Unknown]
